FAERS Safety Report 14098616 (Version 1)
Quarter: 2017Q4

REPORT INFORMATION
  Report Type: Spontaneous
  Country: US (occurrence: US)
  Receive Date: 20171017
  Receipt Date: 20171017
  Transmission Date: 20180321
  Serious: Yes (Hospitalization)
  Sender: FDA-Public Use
  Company Number: US-ASPEN PHARMA TRADING LIMITED US-AG-2017-007195

PATIENT
  Age: 10 Year
  Sex: Male
  Weight: 37.4 kg

DRUGS (9)
  1. VINCRISTINE [Suspect]
     Active Substance: VINCRISTINE
     Indication: B PRECURSOR TYPE ACUTE LEUKAEMIA
     Dosage: 1.9 MG, ON UNKNOWN FREQUENCY
     Route: 042
     Dates: start: 20170626
  2. CYCLOPHOSPHAMIDE. [Suspect]
     Active Substance: CYCLOPHOSPHAMIDE
     Indication: B PRECURSOR TYPE ACUTE LEUKAEMIA
     Dosage: 1270 MG, ON UNKNOWN FREQUENCY
     Route: 042
     Dates: start: 20170814
  3. METHOTREXATE. [Suspect]
     Active Substance: METHOTREXATE
     Indication: B PRECURSOR TYPE ACUTE LEUKAEMIA
     Dosage: 15 MG, ON UNKNOWN FREQUENCY
     Route: 037
     Dates: start: 20170626
  4. TIOGUANINE [Suspect]
     Active Substance: THIOGUANINE ANHYDROUS
     Indication: B PRECURSOR TYPE ACUTE LEUKAEMIA
     Dosage: 60-80 MG, ON UNKNOWN FREQUENCY
     Route: 048
     Dates: start: 20170814
  5. PEGASPARGASE [Suspect]
     Active Substance: PEGASPARGASE
     Indication: B PRECURSOR TYPE ACUTE LEUKAEMIA
     Dosage: 3175 IU/M2, ON UNKNOWN FREQUENCY
     Route: 042
     Dates: start: 20170629
  6. CYTARABINE. [Suspect]
     Active Substance: CYTARABINE
     Indication: B PRECURSOR TYPE ACUTE LEUKAEMIA
     Dosage: 95 MG/M2, ON UNKNOWN FREQUENCY
     Route: 042
     Dates: start: 20170814
  7. DOXORUBICIN [Suspect]
     Active Substance: DOXORUBICIN
     Indication: B PRECURSOR TYPE ACUTE LEUKAEMIA
     Dosage: 30 MG, ON UNKNOWN FREQUENCY
     Route: 042
     Dates: start: 20170626
  8. DEXAMETHASONE. [Suspect]
     Active Substance: DEXAMETHASONE
     Indication: B PRECURSOR TYPE ACUTE LEUKAEMIA
     Route: 048
     Dates: start: 20170626
  9. METHOTREXATE. [Suspect]
     Active Substance: METHOTREXATE
     Dosage: 3410 MG, ON UNKNOWN FREQUENCY
     Route: 042
     Dates: start: 20170626

REACTIONS (1)
  - Febrile neutropenia [Not Recovered/Not Resolved]

NARRATIVE: CASE EVENT DATE: 20170904
